FAERS Safety Report 6330276-5 (Version None)
Quarter: 2009Q3

REPORT INFORMATION
  Report Type: 
  Country: None (occurrence: None)
  Receive Date: 20090827
  Receipt Date: 20090727
  Transmission Date: 20100115
  Serious: No
  Sender: FDA-Public Use
  Company Number: US-KINGPHARMUSA00001-K200900887

PATIENT
  Sex: Female
  Weight: 86.168 kg

DRUGS (2)
  1. FLECTOR [Suspect]
     Indication: ARTHRALGIA
     Dosage: 1 PATCH, BID
     Route: 061
     Dates: start: 20090723, end: 20090724
  2. VITAMINS [Concomitant]
     Dosage: UNK

REACTIONS (2)
  - FAECES DISCOLOURED [None]
  - NAUSEA [None]
